FAERS Safety Report 5369987-7 (Version None)
Quarter: 2007Q2

REPORT INFORMATION
  Report Type: 
  Country: None (occurrence: None)
  Receive Date: 20070626
  Receipt Date: 20070619
  Transmission Date: 20071010
  Serious: Yes (Hospitalization)
  Sender: FDA-Public Use
  Company Number: PHRM2007FR01684

PATIENT
  Age: 47 Year
  Sex: Female
  Weight: 65 kg

DRUGS (5)
  1. CLOZAPINE [Suspect]
     Dosage: 100 MG MORNING, 300 MG EVENING
     Route: 048
     Dates: start: 20060923, end: 20070101
  2. CLOZAPINE [Suspect]
     Dosage: 100 MG MORNING, 600 MG EVENING
     Route: 048
     Dates: start: 20070101, end: 20070101
  3. CLOZAPINE [Suspect]
     Dosage: 100 MG MORNING, 300 MG EVENING
     Route: 048
     Dates: start: 20070101
  4. EQUANIL [Concomitant]
     Route: 048
  5. LOXAPAC [Concomitant]
     Route: 048

REACTIONS (6)
  - EPILEPSY [None]
  - HYPERHIDROSIS [None]
  - INCORRECT DOSE ADMINISTERED [None]
  - SALIVARY HYPERSECRETION [None]
  - TACHYCARDIA [None]
  - WEIGHT INCREASED [None]
